FAERS Safety Report 21213705 (Version 1)
Quarter: 2022Q3

REPORT INFORMATION
  Report Type: Spontaneous
  Country: US (occurrence: US)
  Receive Date: 20220816
  Receipt Date: 20220816
  Transmission Date: 20221026
  Serious: Yes (Other)
  Sender: FDA-Public Use
  Company Number: US-CELGENE-USA-2015063936

PATIENT
  Sex: Female

DRUGS (1)
  1. REVLIMID [Suspect]
     Active Substance: LENALIDOMIDE
     Indication: Product used for unknown indication
     Dosage: DAILY DOSE : 25MG, 21 IN 28 DAYS
     Route: 050
     Dates: start: 20131014, end: 20141215

REACTIONS (2)
  - Exposure via body fluid [Unknown]
  - Live birth [Unknown]
